FAERS Safety Report 5635043-3 (Version None)
Quarter: 2008Q1

REPORT INFORMATION
  Report Type: 
  Country: None (occurrence: None)
  Receive Date: 20080222
  Receipt Date: 20080222
  Transmission Date: 20080703
  Serious: Yes (Disabling)
  Sender: FDA-Public Use
  Company Number: A0711185A

PATIENT
  Age: 37 Year
  Sex: Female

DRUGS (2)
  1. ALLI [Suspect]
  2. VITAMIN TAB [Concomitant]

REACTIONS (4)
  - BLOOD AMYLASE INCREASED [None]
  - DIAPHRAGMALGIA [None]
  - LIPASE INCREASED [None]
  - PANCREATITIS [None]
